FAERS Safety Report 17891558 (Version 1)
Quarter: 2020Q2

REPORT INFORMATION
  Report Type: Spontaneous
  Country: GB (occurrence: GB)
  Receive Date: 20200612
  Receipt Date: 20200612
  Transmission Date: 20200714
  Serious: Yes (Other)
  Sender: FDA-Public Use
  Company Number: GB-009507513-2006GBR004180

PATIENT
  Age: 54 Year
  Sex: Female

DRUGS (2)
  1. PEMBROLIZUMAB. [Suspect]
     Active Substance: PEMBROLIZUMAB
     Indication: MELANOMA RECURRENT
  2. NIVOLUMAB [Suspect]
     Active Substance: NIVOLUMAB
     Indication: MELANOMA RECURRENT
     Dosage: FOR 2 YEARS

REACTIONS (2)
  - Neuropathy peripheral [Unknown]
  - Therapy non-responder [Unknown]
